FAERS Safety Report 7333015-4 (Version None)
Quarter: 2011Q1

REPORT INFORMATION
  Report Type: 
  Country: None (occurrence: None)
  Receive Date: 20110304
  Receipt Date: 20110223
  Transmission Date: 20110831
  Serious: Yes (Hospitalization)
  Sender: FDA-Public Use
  Company Number: US-ASTRAZENECA-2011SE10208

PATIENT
  Age: 52 Year
  Sex: Female
  Weight: 77.6 kg

DRUGS (13)
  1. SEROQUEL [Suspect]
     Route: 048
     Dates: start: 20110101
  2. CYMBALTA [Concomitant]
  3. OMEPRAZOLE [Concomitant]
     Indication: GASTROOESOPHAGEAL REFLUX DISEASE
  4. ASCORBIC ACID [Concomitant]
  5. SEROQUEL [Suspect]
     Route: 048
     Dates: start: 20110101
  6. OXYCODONE [Concomitant]
     Dosage: 10/325 MG PRN
  7. SEROQUEL [Suspect]
     Indication: BIPOLAR I DISORDER
     Route: 048
     Dates: start: 20100101
  8. PREDNISONE [Concomitant]
     Indication: ARTHRALGIA
  9. TRAMADOL HCL [Concomitant]
  10. GABAPENTIN [Concomitant]
  11. FENTANYL-100 [Concomitant]
     Indication: PAIN
  12. OXYCONTIN [Concomitant]
     Indication: PAIN
  13. LYRICA [Concomitant]

REACTIONS (7)
  - ANGER [None]
  - PELVIC PAIN [None]
  - ANXIETY [None]
  - VIOLENCE-RELATED SYMPTOM [None]
  - DEPRESSION [None]
  - DECREASED INTEREST [None]
  - IRRITABILITY [None]
